FAERS Safety Report 6774428-9 (Version None)
Quarter: 2010Q2

REPORT INFORMATION
  Report Type: 
  Country: None (occurrence: None)
  Receive Date: 20100616
  Receipt Date: 20100611
  Transmission Date: 20101027
  Serious: No
  Sender: FDA-Public Use
  Company Number: DL2010-0498

PATIENT
  Age: 22 Year
  Sex: Female

DRUGS (5)
  1. MIFEPRISTONE (MIFEPREX) [Suspect]
     Indication: ABORTION INDUCED
     Dosage: 200 MG ORAL
     Route: 048
     Dates: start: 20100521
  2. MISOPROSTOL [Suspect]
     Dosage: 800 MCG, 400 MCG, 400 MCG BUCCAL
     Route: 002
     Dates: start: 20100523
  3. MISOPROSTOL [Suspect]
     Dosage: 800 MCG, 400 MCG, 400 MCG BUCCAL
     Route: 002
     Dates: start: 20100605
  4. MISOPROSTOL [Suspect]
     Dosage: 800 MCG, 400 MCG, 400 MCG BUCCAL
     Route: 002
     Dates: start: 20100606
  5. DOXYCYCLINE [Concomitant]

REACTIONS (3)
  - ANAEMIA [None]
  - HAEMORRHAGE [None]
  - UTERINE HAEMORRHAGE [None]
